FAERS Safety Report 18243902 (Version 5)
Quarter: 2021Q3

REPORT INFORMATION
  Report Type: Report from Study
  Country: GB (occurrence: GB)
  Receive Date: 20200908
  Receipt Date: 20210804
  Transmission Date: 20211014
  Serious: Yes (Hospitalization, Other)
  Sender: FDA-Public Use
  Company Number: NVSC2020GB070535

PATIENT
  Age: 27 Year
  Sex: Male

DRUGS (14)
  1. OMNITROPE [Suspect]
     Active Substance: SOMATROPIN
     Dosage: 0.3 MG, QD (05/1.5 MG/ML)
     Route: 058
     Dates: start: 20170823
  2. OMNITROPE [Suspect]
     Active Substance: SOMATROPIN
     Dosage: 0.8 MG, UNKNOWN(STRENGTH:5MG/1.5ML)
     Route: 058
     Dates: start: 201708
  3. MENOPUR [Concomitant]
     Active Substance: FOLLITROPIN\LUTEINIZING HORMONE
     Indication: LUTEINISING HORMONE DEFICIENCY
     Dosage: UNK
     Route: 058
  4. HYDROCORTISONE. [Concomitant]
     Active Substance: HYDROCORTISONE
     Indication: ADRENOCORTICOTROPIC HORMONE DEFICIENCY
     Dosage: UNK
     Route: 048
     Dates: start: 20091215
  5. DESMOTABS [Concomitant]
     Active Substance: DESMOPRESSIN
     Indication: DIABETES INSIPIDUS
     Dosage: 350 UG
     Route: 048
     Dates: start: 20091215
  6. LEVOTHYROXINE. [Concomitant]
     Active Substance: LEVOTHYROXINE
     Indication: BLOOD THYROID STIMULATING HORMONE DECREASED
     Dosage: 150 UG
     Route: 048
     Dates: start: 20091215
  7. GONASI HP [Concomitant]
     Active Substance: GONADOTROPHIN, CHORIONIC
     Indication: FOLLICLE STIMULATING HORMONE DEFICIENCY
  8. VITAMIN D [Concomitant]
     Active Substance: VITAMIN D NOS
     Indication: PROPHYLAXIS
     Dosage: UNK
     Route: 048
     Dates: start: 202101
  9. PREGNYL [Concomitant]
     Active Substance: CHORIOGONADOTROPIN ALFA
     Indication: LUTEINISING HORMONE DEFICIENCY
     Dosage: UNK
     Route: 058
  10. MENOPUR [Concomitant]
     Active Substance: FOLLITROPIN\LUTEINIZING HORMONE
     Indication: FOLLICLE STIMULATING HORMONE DEFICIENCY
  11. OMNITROPE [Suspect]
     Active Substance: SOMATROPIN
     Indication: GROWTH HORMONE DEFICIENCY
     Dosage: UNK UNK, QD
     Route: 065
     Dates: start: 20170615
  12. HYDROCORTISONE. [Concomitant]
     Active Substance: HYDROCORTISONE
     Dosage: 20 MG, UNKNOWN
     Route: 048
     Dates: start: 201212
  13. GONASI HP [Concomitant]
     Active Substance: GONADOTROPHIN, CHORIONIC
     Indication: LUTEINISING HORMONE DEFICIENCY
     Dosage: 5000 UNSPECIFIED UNITS, UNKNOWN
     Route: 058
     Dates: start: 201612
  14. PREGNYL [Concomitant]
     Active Substance: CHORIOGONADOTROPIN ALFA
     Indication: FOLLICLE STIMULATING HORMONE DEFICIENCY

REACTIONS (15)
  - Pain in extremity [Not Recovered/Not Resolved]
  - Hypoaesthesia [Not Recovered/Not Resolved]
  - Myopia [Not Recovered/Not Resolved]
  - Fatigue [Not Recovered/Not Resolved]
  - Joint effusion [Recovered/Resolved]
  - Arthritis bacterial [Recovered/Resolved]
  - Arthralgia [Recovered/Resolved]
  - Paternal exposure during pregnancy [Unknown]
  - Muscular weakness [Not Recovered/Not Resolved]
  - Dust allergy [Not Recovered/Not Resolved]
  - Dizziness [Not Recovered/Not Resolved]
  - Bursitis [Recovered/Resolved]
  - Joint swelling [Recovered/Resolved]
  - Cellulitis [Unknown]
  - Reaction to food additive [Not Recovered/Not Resolved]

NARRATIVE: CASE EVENT DATE: 201906
